FAERS Safety Report 14904901 (Version 1)
Quarter: 2018Q2

REPORT INFORMATION
  Report Type: Spontaneous
  Country: US (occurrence: US)
  Receive Date: 20180517
  Receipt Date: 20180517
  Transmission Date: 20180711
  Serious: No
  Sender: FDA-Public Use
  Company Number: US-SA-2017SA197541

PATIENT
  Age: 66 Year
  Sex: Female

DRUGS (4)
  1. LANTUS SOLOSTAR [Suspect]
     Active Substance: INSULIN GLARGINE
     Indication: TYPE 2 DIABETES MELLITUS
     Dosage: DOSE:40 UNIT(S)
     Route: 051
     Dates: end: 20171001
  2. LANTUS SOLOSTAR [Suspect]
     Active Substance: INSULIN GLARGINE
     Indication: TYPE 2 DIABETES MELLITUS
     Dosage: DOSE:40 UNIT(S)
     Route: 051
     Dates: start: 20171002
  3. SOLOSTAR [Suspect]
     Active Substance: DEVICE
     Indication: TYPE 2 DIABETES MELLITUS
     Dates: end: 20171001
  4. SOLOSTAR [Suspect]
     Active Substance: DEVICE
     Indication: TYPE 2 DIABETES MELLITUS
     Dates: start: 20171002

REACTIONS (6)
  - Tremor [Unknown]
  - Pain in extremity [Unknown]
  - Product use issue [Unknown]
  - Syncope [Unknown]
  - Confusional state [Unknown]
  - Drug dose omission [Unknown]

NARRATIVE: CASE EVENT DATE: 20171006
